FAERS Safety Report 5158275-X (Version None)
Quarter: 2006Q4

REPORT INFORMATION
  Report Type: 
  Country: None (occurrence: None)
  Receive Date: 20061121
  Receipt Date: 20061121
  Transmission Date: 20070319
  Serious: Yes (Life-Threatening, Other)
  Sender: FDA-Public Use
  Company Number: None

PATIENT
  Age: 22 Year
  Sex: Female
  Weight: 54 kg

DRUGS (3)
  1. REMICADE [Suspect]
     Indication: CROHN'S DISEASE
     Dosage: 275 MG IN 250ML NS ONCE IV
     Route: 042
     Dates: start: 20050913, end: 20050913
  2. ASACOL [Concomitant]
  3. BIRTH CONTROL PILLS [Concomitant]

REACTIONS (6)
  - FLUSHING [None]
  - INFUSION RELATED REACTION [None]
  - MYALGIA [None]
  - RASH [None]
  - RESPIRATORY DISTRESS [None]
  - THROAT TIGHTNESS [None]
